FAERS Safety Report 23025779 (Version 2)
Quarter: 2023Q4

REPORT INFORMATION
  Report Type: Spontaneous
  Country: US (occurrence: US)
  Receive Date: 20231004
  Receipt Date: 20231103
  Transmission Date: 20240110
  Serious: No
  Sender: FDA-Public Use
  Company Number: US-ABBVIE-5431361

PATIENT
  Age: 30 Year
  Sex: Female
  Weight: 75.7 kg

DRUGS (6)
  1. SKYRIZI [Suspect]
     Active Substance: RISANKIZUMAB-RZAA
     Indication: Crohn^s disease
     Dosage: UNKNOWN?FIRST DOSE
     Route: 042
     Dates: start: 20230720, end: 20230720
  2. SKYRIZI [Suspect]
     Active Substance: RISANKIZUMAB-RZAA
     Indication: Crohn^s disease
     Dosage: UNKNOWN?SECOND DOSE
     Route: 042
     Dates: start: 20230817, end: 20230817
  3. SKYRIZI [Suspect]
     Active Substance: RISANKIZUMAB-RZAA
     Indication: Crohn^s disease
     Dosage: 3RD INDUCTION DOSE
     Route: 042
     Dates: start: 20230920
  4. PROMETHAZINE [Concomitant]
     Active Substance: PROMETHAZINE HYDROCHLORIDE
     Indication: Nausea
     Dosage: FORM STRENGTH: 12.5 MILLIGRAM
  5. ZOFRAN [Concomitant]
     Active Substance: ONDANSETRON HYDROCHLORIDE
     Indication: Nausea
  6. PAXIL [Concomitant]
     Active Substance: PAROXETINE HYDROCHLORIDE
     Indication: Product used for unknown indication

REACTIONS (3)
  - Hypersensitivity [Recovered/Resolved]
  - Throat tightness [Recovered/Resolved]
  - Stress [Unknown]

NARRATIVE: CASE EVENT DATE: 20230920
